FAERS Safety Report 16428843 (Version 3)
Quarter: 2019Q2

REPORT INFORMATION
  Report Type: Spontaneous
  Country: NL (occurrence: NL)
  Receive Date: 20190613
  Receipt Date: 20190613
  Transmission Date: 20190711
  Serious: Yes (Other)
  Sender: FDA-Public Use
  Company Number: PHHY2019NL131108

PATIENT
  Age: 63 Year
  Sex: Male

DRUGS (2)
  1. DICLOFENAC [Suspect]
     Active Substance: DICLOFENAC
     Indication: PRODUCT USED FOR UNKNOWN INDICATION
     Dosage: DISSOLVED IN 100 ML SALINE SOLUTION
     Route: 042
  2. SALINE [Concomitant]
     Active Substance: SODIUM CHLORIDE
     Indication: PRODUCT USED FOR UNKNOWN INDICATION
     Route: 042

REACTIONS (5)
  - Acute myocardial infarction [Recovered/Resolved]
  - Left ventricular dysfunction [Recovered/Resolved]
  - Kounis syndrome [Recovered/Resolved]
  - Myocardial ischaemia [Recovered/Resolved]
  - Anaphylactic shock [Recovered/Resolved]
